FAERS Safety Report 26119613 (Version 2)
Quarter: 2025Q4

REPORT INFORMATION
  Report Type: Report from Study
  Country: EU (occurrence: EU)
  Receive Date: 20251204
  Receipt Date: 20251216
  Transmission Date: 20260118
  Serious: Yes (Other)
  Sender: ABBVIE
  Company Number: EU-ABBVIE-6573607

PATIENT
  Age: 76 Year
  Sex: Male

DRUGS (2)
  1. FOSCARBIDOPA\FOSLEVODOPA [Suspect]
     Active Substance: FOSCARBIDOPA\FOSLEVODOPA
     Indication: Parkinson^s disease
     Dosage: 240MG/ML FOSLEVODOPA + 12MG/ML FOSCARBIDOPA - INITIAL DOSES: LOADING 0.60 ML; HIGH 0.30ML/H, BASE...
     Route: 058
     Dates: start: 20251030, end: 20251119
  2. FOSCARBIDOPA\FOSLEVODOPA [Suspect]
     Active Substance: FOSCARBIDOPA\FOSLEVODOPA
     Dosage: 240MG/ML FOSLEVODOPA + 12MG/ML FOSCARBIDOPA - DOSES: LOADING 0.60ML; HIGH DOSE: 0.30ML/H; BASE DO...
     Route: 058
     Dates: start: 20251119

REACTIONS (1)
  - Haemoglobin decreased [Recovered/Resolved]

NARRATIVE: CASE EVENT DATE: 20251127
